FAERS Safety Report 5314342-9 (Version None)
Quarter: 2007Q2

REPORT INFORMATION
  Report Type: 
  Country: None (occurrence: None)
  Receive Date: 20070502
  Receipt Date: 20070421
  Transmission Date: 20071010
  Serious: Yes (Congenital Anomaly)
  Sender: FDA-Public Use
  Company Number: AU-JNJFOC-20070405063

PATIENT

DRUGS (4)
  1. TOPIRAMATE [Suspect]
     Indication: DRUG EXPOSURE DURING PREGNANCY
  2. TOPIRAMATE [Suspect]
     Indication: MATERNAL DRUGS AFFECTING FOETUS
  3. LEVETIRACETAM [Concomitant]
     Indication: MATERNAL DRUGS AFFECTING FOETUS
  4. LEVETIRACETAM [Concomitant]
     Indication: DRUG EXPOSURE DURING PREGNANCY

REACTIONS (3)
  - ATRIAL SEPTAL DEFECT [None]
  - CONGENITAL ANOMALY [None]
  - DRUG EXPOSURE DURING PREGNANCY [None]
